FAERS Safety Report 8222538-1 (Version None)
Quarter: 2012Q1

REPORT INFORMATION
  Report Type: 
  Country: None (occurrence: None)
  Receive Date: 20120320
  Receipt Date: 20120312
  Transmission Date: 20120608
  Serious: Yes (Congenital Anomaly, Other)
  Sender: FDA-Public Use
  Company Number: CA-PFIZER INC-2012066304

PATIENT
  Sex: Female
  Weight: 2.14 kg

DRUGS (11)
  1. HYDROXYZINE [Concomitant]
     Dosage: 25 MG, 4X/DAY
     Route: 064
  2. METOCLOPRAMIDE [Concomitant]
     Route: 048
  3. DIPHENHYDRAMINE [Concomitant]
     Dosage: 50 MG, 4X/DAY
     Route: 064
  4. ONDANSETRON HCL [Suspect]
     Route: 064
  5. OMEPRAZOLE [Concomitant]
     Route: 064
  6. RANITIDINE [Concomitant]
     Route: 064
  7. METOCLOPRAMIDE [Concomitant]
     Route: 064
  8. PANTOPRAZOLE [Concomitant]
     Route: 064
  9. DEXTROSE 5% AND SODIUM CHLORIDE 0.45% IN PLASTIC CONTAINER [Concomitant]
     Route: 064
  10. ACETAMINOPHEN [Concomitant]
     Route: 064
  11. THIAMINE [Concomitant]
     Dosage: 100 MG, UNK
     Route: 064

REACTIONS (2)
  - MATERNAL EXPOSURE TIMING UNSPECIFIED [None]
  - FOETAL GROWTH RESTRICTION [None]
